FAERS Safety Report 5583901-0 (Version None)
Quarter: 2008Q1

REPORT INFORMATION
  Report Type: 
  Country: None (occurrence: None)
  Receive Date: 20080102
  Receipt Date: 20080102
  Transmission Date: 20080703
  Serious: Yes (Other)
  Sender: FDA-Public Use
  Company Number: None

PATIENT
  Age: 30 Year
  Sex: Female
  Weight: 65.7716 kg

DRUGS (1)
  1. NORETHIDRONE 5MG [Suspect]
     Indication: UTERINE HAEMORRHAGE
     Dosage: DAILY PO
     Route: 048
     Dates: start: 20071221, end: 20071229

REACTIONS (3)
  - DEPRESSION [None]
  - FEAR [None]
  - THINKING ABNORMAL [None]
